FAERS Safety Report 12609197 (Version 1)
Quarter: 2016Q3

REPORT INFORMATION
  Report Type: Spontaneous
  Country: IT (occurrence: IT)
  Receive Date: 20160801
  Receipt Date: 20160801
  Transmission Date: 20161109
  Serious: Yes (Other)
  Sender: FDA-Public Use
  Company Number: IT-ROCHE-1803206

PATIENT
  Age: 43 Year
  Sex: Female

DRUGS (5)
  1. SIRDALUD [Concomitant]
     Active Substance: TIZANIDINE
     Indication: NEUROMUSCULAR PAIN
  2. IBUPROFEN. [Concomitant]
     Active Substance: IBUPROFEN
     Indication: NEUROMUSCULAR PAIN
  3. PAROXETINE. [Suspect]
     Active Substance: PAROXETINE
     Indication: PANIC ATTACK
     Dosage: 28 IN 20 MG AL/AL BLISTER PACK,PERIOD: 1 MONTH
     Route: 048
  4. RIVOTRIL [Suspect]
     Active Substance: CLONAZEPAM
     Indication: PANIC ATTACK
     Dosage: ^2.5 MG/ML BOTTLE CONTAINING 10 ML,PERIOD:1 MONTH
     Route: 048
  5. EN [Suspect]
     Active Substance: DELORAZEPAM
     Indication: PANIC ATTACK
     Dosage: 1 MG/ML BOTTLE CONTAINING 20 ML,PERIOD: 1 MONTH; 5 GTT  AT 14:00 AND 15 GTT AT  21:00
     Route: 048

REACTIONS (3)
  - Hypotension [Recovered/Resolved]
  - Asthenia [Unknown]
  - Crying [Unknown]

NARRATIVE: CASE EVENT DATE: 20160717
